FAERS Safety Report 7902418-9 (Version None)
Quarter: 2011Q4

REPORT INFORMATION
  Report Type: 
  Country: None (occurrence: None)
  Receive Date: 20111108
  Receipt Date: 20111101
  Transmission Date: 20120403
  Serious: Yes (Hospitalization)
  Sender: FDA-Public Use
  Company Number: NL-ABBOTT-11P-114-0853367-00

PATIENT
  Sex: Female
  Weight: 62 kg

DRUGS (12)
  1. MACROGOL/SALTS POWDER FOR BEVERAGE [Concomitant]
     Indication: CONSTIPATION
     Route: 048
  2. MEDROXYPROGESTERONE [Concomitant]
     Indication: PRODUCT USED FOR UNKNOWN INDICATION
     Dosage: 150 INJSUSP 150 MG/ML
  3. BISACODYL [Concomitant]
     Indication: CONSTIPATION
     Route: 048
     Dates: start: 20080101
  4. SUCRALFATE [Concomitant]
     Indication: PRODUCT USED FOR UNKNOWN INDICATION
     Route: 048
  5. HUMIRA [Suspect]
     Indication: CROHN'S DISEASE
     Route: 058
     Dates: start: 20110830, end: 20111010
  6. AZATHIOPRINE [Concomitant]
     Indication: PRODUCT USED FOR UNKNOWN INDICATION
     Route: 048
  7. AZATHIOPRINE [Concomitant]
  8. PANTOPRAZOLE [Concomitant]
     Indication: GASTRIC DISORDER
     Route: 048
  9. PELARGONLUM [Concomitant]
     Indication: PRODUCT USED FOR UNKNOWN INDICATION
     Route: 048
  10. FENTANYL [Concomitant]
     Indication: PAIN
     Dosage: 50MCG/HOUR EVERY 3 DAYS ONE TIME
     Route: 061
     Dates: start: 20080101
  11. PANTOPRAZOLE [Concomitant]
     Indication: PROPHYLAXIS
  12. COLESTYRAMIN [Concomitant]
     Indication: PRODUCT USED FOR UNKNOWN INDICATION

REACTIONS (7)
  - INFLAMMATION [None]
  - ABDOMINAL OPERATION [None]
  - ABDOMINAL PAIN [None]
  - CONSTIPATION [None]
  - ABSCESS INTESTINAL [None]
  - ANURIA [None]
  - LOCALISED INTRAABDOMINAL FLUID COLLECTION [None]
